FAERS Safety Report 22297629 (Version 1)
Quarter: 2023Q2

REPORT INFORMATION
  Report Type: Spontaneous
  Country: US (occurrence: US)
  Receive Date: 20230509
  Receipt Date: 20230509
  Transmission Date: 20230721
  Serious: Yes (Hospitalization, Other)
  Sender: FDA-Public Use
  Company Number: US-AJANTA-2023AJA00072

PATIENT
  Age: 28 Year
  Sex: Male

DRUGS (10)
  1. ARIPIPRAZOLE [Suspect]
     Active Substance: ARIPIPRAZOLE
     Indication: Bipolar I disorder
  2. ARIPIPRAZOLE [Suspect]
     Active Substance: ARIPIPRAZOLE
     Indication: Hypomania
     Dosage: THREE MONTHS LATER
  3. ARIPIPRAZOLE [Suspect]
     Active Substance: ARIPIPRAZOLE
  4. ARIPIPRAZOLE [Suspect]
     Active Substance: ARIPIPRAZOLE
  5. LITHIUM [Concomitant]
     Active Substance: LITHIUM
  6. LITHIUM [Concomitant]
     Active Substance: LITHIUM
     Dosage: IN THE MORNING
  7. LITHIUM [Concomitant]
     Active Substance: LITHIUM
     Dosage: EVERY NIGHT AT BEDTIME
  8. BENZTROPINE [Concomitant]
     Active Substance: BENZTROPINE
  9. METFORMIN [Concomitant]
     Active Substance: METFORMIN HYDROCHLORIDE
     Dosage: EXTENDED RELEASE
  10. LEVOTHYROXINE [Concomitant]
     Active Substance: LEVOTHYROXINE

REACTIONS (1)
  - Pericarditis [Unknown]
